FAERS Safety Report 19271981 (Version 2)
Quarter: 2024Q1

REPORT INFORMATION
  Report Type: Spontaneous
  Country: US (occurrence: US)
  Receive Date: 20210519
  Receipt Date: 20240201
  Transmission Date: 20240409
  Serious: No
  Sender: FDA-Public Use
  Company Number: US-NOVEN PHARMACEUTICALS, INC.-2021US002054

PATIENT
  Age: 9 Year
  Sex: Male

DRUGS (5)
  1. DAYTRANA [Suspect]
     Active Substance: METHYLPHENIDATE
     Indication: Attention deficit hyperactivity disorder
     Dosage: 30MG/9HR, UNK
     Route: 062
     Dates: start: 202008, end: 202103
  2. OXTELLAR XR [Concomitant]
     Active Substance: OXCARBAZEPINE
     Indication: Impulse-control disorder
  3. OXTELLAR XR [Concomitant]
     Active Substance: OXCARBAZEPINE
     Indication: Anger
  4. CLONIDINE [Concomitant]
     Active Substance: CLONIDINE
     Indication: Impulse-control disorder
  5. CLONIDINE [Concomitant]
     Active Substance: CLONIDINE
     Indication: Anger

REACTIONS (2)
  - Therapeutic response unexpected [Recovered/Resolved]
  - No adverse event [Unknown]
